FAERS Safety Report 7955416 (Version 12)
Quarter: 2013Q4

REPORT INFORMATION
  Report Type: Report from Study
  Country: US (occurrence: US)
  Receive Date: 20110523
  Receipt Date: 20131108
  Transmission Date: 20140711
  Serious: Yes (Death, Other)
  Sender: FDA-Public Use
  Company Number: US-ROCHE-777503

PATIENT
  Sex: 0

DRUGS (3)
  1. MYCOPHENOLATE MOFETIL [Suspect]
     Indication: PROPHYLAXIS AGAINST TRANSPLANT REJECTION
     Route: 065
  2. EVEROLIMUS [Suspect]
     Indication: PROPHYLAXIS AGAINST TRANSPLANT REJECTION
     Dosage: 1.5 MG, 3 MG
     Route: 065
  3. CICLOSPORINE [Suspect]
     Indication: PROPHYLAXIS AGAINST TRANSPLANT REJECTION
     Route: 065

REACTIONS (10)
  - Infection [Fatal]
  - Cytomegalovirus infection [Unknown]
  - Pericardial effusion [Unknown]
  - Cardiac tamponade [Unknown]
  - Impaired healing [Unknown]
  - Pleural effusion [Unknown]
  - Nephrotic syndrome [Unknown]
  - Diabetes mellitus [Unknown]
  - Oedema peripheral [Unknown]
  - Haemodynamic instability [Unknown]
